FAERS Safety Report 7526369-7 (Version None)
Quarter: 2011Q2

REPORT INFORMATION
  Report Type: 
  Country: None (occurrence: None)
  Receive Date: 20110527
  Receipt Date: 20110513
  Transmission Date: 20111010
  Serious: Yes (Hospitalization, Other)
  Sender: FDA-Public Use
  Company Number: 2011S1001572

PATIENT
  Sex: Male

DRUGS (5)
  1. SODIUM PHOSPHATE MONOBASIC MONOHYDRATE AND NAPO4 DIBASIC ANHYDROUS [Suspect]
     Indication: COLONOSCOPY
     Dosage: ;PO
     Route: 048
     Dates: start: 20071202, end: 20071202
  2. LISINOPRIL [Concomitant]
  3. ALLOPURINOL [Concomitant]
  4. LIPITOR [Concomitant]
  5. ADVAIR DISKUS 100/50 [Concomitant]

REACTIONS (5)
  - NEPHROCALCINOSIS [None]
  - HYPERPHOSPHATAEMIA [None]
  - NEPHROPATHY [None]
  - RENAL DISORDER [None]
  - RENAL FAILURE CHRONIC [None]
